FAERS Safety Report 4854990-3 (Version None)
Quarter: 2005Q4

REPORT INFORMATION
  Report Type: 
  Country: None (occurrence: None)
  Receive Date: 20051214
  Receipt Date: 20051208
  Transmission Date: 20060501
  Serious: Yes (Other)
  Sender: FDA-Public Use
  Company Number: DE-2005-026270

PATIENT
  Sex: Female

DRUGS (2)
  1. YASMIN [Suspect]
     Dosage: ORAL
     Route: 048
  2. DEPAKENE [Suspect]

REACTIONS (2)
  - DRUG INTERACTION [None]
  - VENOUS THROMBOSIS LIMB [None]
